FAERS Safety Report 7422628-7 (Version None)
Quarter: 2011Q2

REPORT INFORMATION
  Report Type: 
  Country: None (occurrence: None)
  Receive Date: 20110407
  Receipt Date: 20110325
  Transmission Date: 20111010
  Serious: Yes (Other)
  Sender: FDA-Public Use
  Company Number: NPIL/ISO/H/2011/35

PATIENT
  Age: 2 Year
  Sex: Male

DRUGS (6)
  1. ROCURONIUM [Suspect]
     Indication: PREOPERATIVE CARE
  2. ROCURONIUM [Concomitant]
  3. FENTANYL [Concomitant]
  4. MIDAZOLAM [Concomitant]
  5. ISOFLURANE [Suspect]
     Indication: ANAESTHESIA
     Dosage: ONCE, INHALATION
  6. CEFAZOLIN [Concomitant]

REACTIONS (1)
  - KOUNIS SYNDROME [None]
